FAERS Safety Report 21689315 (Version 1)
Quarter: 2022Q4

REPORT INFORMATION
  Report Type: Spontaneous
  Country: US (occurrence: None)
  Receive Date: 20221206
  Receipt Date: 20221206
  Transmission Date: 20230112
  Serious: Yes (Life-Threatening)
  Sender: FDA-Public Use
  Company Number: None

PATIENT
  Age: 28 Year
  Sex: Male
  Weight: 83.25 kg

DRUGS (2)
  1. LACOSAMIDE [Suspect]
     Active Substance: LACOSAMIDE
     Indication: Epilepsy
     Dosage: FREQUENCY : TWICE A DAY;?
     Route: 048
     Dates: start: 20221108, end: 20221205
  2. LACOSAMIDE [Concomitant]
     Active Substance: LACOSAMIDE
     Dates: start: 20221108, end: 20221205

REACTIONS (2)
  - Seizure [None]
  - Abnormal behaviour [None]

NARRATIVE: CASE EVENT DATE: 20221206
